FAERS Safety Report 5894954-4 (Version None)
Quarter: 2008Q3

REPORT INFORMATION
  Report Type: 
  Country: None (occurrence: None)
  Receive Date: 20080922
  Receipt Date: 20080912
  Transmission Date: 20090109
  Serious: Yes (Death, Hospitalization)
  Sender: FDA-Public Use
  Company Number: MSTR-NO-0806S-0032

PATIENT
  Age: 82 Year
  Sex: Male
  Weight: 47.9 kg

DRUGS (7)
  1. METASTRON [Suspect]
     Indication: METASTATIC PAIN
     Dosage: NR, SINGLE DOSE, IV
     Route: 042
     Dates: start: 20080311, end: 20080311
  2. FLUTAMIDE [Concomitant]
  3. MELOXICAM [Concomitant]
  4. DICLOFENAC SODIUM [Concomitant]
  5. ZALTOPROFEN [Concomitant]
  6. ZOLEDRONIC ACID [Concomitant]
  7. LEUPRORELIN ACETATE (LEUPLIN) [Concomitant]

REACTIONS (10)
  - ABDOMINAL PAIN UPPER [None]
  - ANAEMIA [None]
  - ASTHENIA [None]
  - DYSPHAGIA [None]
  - GAIT DISTURBANCE [None]
  - GASTRIC ULCER HAEMORRHAGE [None]
  - GENERAL PHYSICAL HEALTH DETERIORATION [None]
  - HOT FLUSH [None]
  - MALAISE [None]
  - PLATELET COUNT DECREASED [None]
